FAERS Safety Report 4839647-7 (Version None)
Quarter: 2005Q4

REPORT INFORMATION
  Report Type: 
  Country: None (occurrence: None)
  Receive Date: 20051125
  Receipt Date: 20051114
  Transmission Date: 20060501
  Serious: Yes (Hospitalization)
  Sender: FDA-Public Use
  Company Number: 02100-JPN-05-0546

PATIENT
  Sex: Female

DRUGS (4)
  1. CILOSTAZOL [Suspect]
     Indication: CEREBRAL INFARCTION
     Dosage: 200  MG, ORAL
     Route: 048
     Dates: start: 20051108, end: 20051112
  2. OZAGREL SODIUM [Suspect]
     Dosage: 120 MG
     Dates: start: 20051108, end: 20051112
  3. EDAVARONE [Concomitant]
  4. GLYCYRRHIZA POWDER COMBINED DRUG01 [Concomitant]

REACTIONS (1)
  - PANCYTOPENIA [None]
